FAERS Safety Report 9311250 (Version 7)
Quarter: 2013Q4

REPORT INFORMATION
  Report Type: Spontaneous
  Country: US (occurrence: US)
  Receive Date: 20130528
  Receipt Date: 20131227
  Transmission Date: 20140711
  Serious: Yes (Hospitalization, Other)
  Sender: FDA-Public Use
  Company Number: US-JNJFOC-20130509485

PATIENT
  Age: 78 Year
  Sex: Male
  Weight: 71.8 kg

DRUGS (11)
  1. ZYTIGA [Suspect]
     Indication: PROSTATE CANCER
     Route: 048
     Dates: start: 201301, end: 20130506
  2. CRESTOR [Interacting]
     Indication: BLOOD CHOLESTEROL ABNORMAL
     Route: 048
     Dates: start: 2011, end: 201305
  3. PREDNISONE [Suspect]
     Indication: PROSTATE CANCER
     Route: 065
     Dates: start: 20130107, end: 20130422
  4. MEDROL [Suspect]
     Indication: RASH
     Route: 065
     Dates: start: 20130422
  5. MEDROL [Suspect]
     Indication: RASH
     Route: 065
  6. MEDROL [Suspect]
     Indication: RASH
     Route: 065
     Dates: start: 20130422
  7. MEDROL [Suspect]
     Indication: RASH
     Route: 065
  8. LOSARTAN [Suspect]
     Indication: PRODUCT USED FOR UNKNOWN INDICATION
     Route: 065
  9. LUPRON [Concomitant]
     Indication: PROSTATE CANCER
     Dosage: LAST DOSE RECIEVED ON 25-MAR-2013
     Route: 065
     Dates: start: 2003
  10. COUMADIN [Concomitant]
     Indication: ATRIAL FIBRILLATION
     Dosage: LAST DOSE RECIEVED ON 25-MAR-2013
     Route: 065
  11. ASPIRIN [Concomitant]
     Indication: PRODUCT USED FOR UNKNOWN INDICATION
     Dosage: LAST DOSE RECIEVED ON 25-MAR-2013
     Route: 065

REACTIONS (4)
  - Renal failure acute [Recovering/Resolving]
  - Rhabdomyolysis [Recovered/Resolved]
  - Liver function test abnormal [Recovered/Resolved]
  - Drug interaction [Recovered/Resolved]
